FAERS Safety Report 17217274 (Version 1)
Quarter: 2019Q4

REPORT INFORMATION
  Report Type: Spontaneous
  Country: GR (occurrence: GR)
  Receive Date: 20191231
  Receipt Date: 20191231
  Transmission Date: 20200122
  Serious: Yes (Hospitalization)
  Sender: FDA-Public Use
  Company Number: GR-TEVA-2019-GR-1159062

PATIENT
  Age: 74 Year
  Sex: Male

DRUGS (6)
  1. LITHIUM. [Suspect]
     Active Substance: LITHIUM
     Indication: BIPOLAR DISORDER
     Dosage: 900 MILLIGRAM DAILY; FOR 37 YEARS
     Route: 065
  2. EZETIMIBE/SIMVASTATIN [Concomitant]
     Active Substance: EZETIMIBE\SIMVASTATIN
     Indication: MYOCARDIAL ISCHAEMIA
     Route: 065
  3. THYROXIN [Concomitant]
     Active Substance: LEVOTHYROXINE
     Indication: HYPOTHYROIDISM
     Dosage: 50 MICROGRAM DAILY;
     Route: 065
  4. IRBESARTAN W/HYDROCHLOROTHIAZIDE [Suspect]
     Active Substance: HYDROCHLOROTHIAZIDE\IRBESARTAN
     Indication: MYOCARDIAL ISCHAEMIA
     Dosage: ADMINISTERED DAILY; 300/12MG
     Route: 065
  5. TRIFLUSAL [Suspect]
     Active Substance: TRIFLUSAL
     Indication: MYOCARDIAL ISCHAEMIA
     Route: 065
  6. BETAXOLOL. [Concomitant]
     Active Substance: BETAXOLOL
     Indication: MYOCARDIAL ISCHAEMIA
     Route: 065

REACTIONS (1)
  - Toxicity to various agents [Recovering/Resolving]
